FAERS Safety Report 4915865-4 (Version None)
Quarter: 2006Q1

REPORT INFORMATION
  Report Type: 
  Country: None (occurrence: None)
  Receive Date: 20060214
  Receipt Date: 20060206
  Transmission Date: 20060701
  Serious: Yes (Hospitalization, Other)
  Sender: FDA-Public Use
  Company Number: 163-20785-05120110

PATIENT
  Age: 48 Year
  Sex: Male

DRUGS (4)
  1. THALOMID [Suspect]
     Indication: MULTIPLE MYELOMA
     Dosage: 150-200MG, DAILY, ORAL
     Route: 048
     Dates: start: 20050628, end: 20051222
  2. DECADRON [Suspect]
     Indication: MULTIPLE MYELOMA
     Dates: start: 20051101
  3. MS CONTIN [Concomitant]
  4. ZOMETA [Concomitant]

REACTIONS (9)
  - BLINDNESS TRANSIENT [None]
  - BONE PAIN [None]
  - BUNDLE BRANCH BLOCK RIGHT [None]
  - CHEST PAIN [None]
  - DIZZINESS [None]
  - DYSPNOEA [None]
  - HIP ARTHROPLASTY [None]
  - OEDEMA PERIPHERAL [None]
  - PITTING OEDEMA [None]
